FAERS Safety Report 4875933-2 (Version None)
Quarter: 2006Q1

REPORT INFORMATION
  Report Type: 
  Country: None (occurrence: None)
  Receive Date: 20060106
  Receipt Date: 20051225
  Transmission Date: 20060701
  Serious: Yes (Hospitalization)
  Sender: FDA-Public Use
  Company Number: US200511000091

PATIENT
  Age: 54 Year
  Sex: Male
  Weight: 75.7 kg

DRUGS (1)
  1. XIGRIS [Suspect]
     Indication: SEPSIS
     Dosage: 24 UG/KG/HR, INTRAVENOUS
     Route: 042
     Dates: start: 20050815

REACTIONS (5)
  - CARDIAC ARREST [None]
  - INTERNATIONAL NORMALISED RATIO INCREASED [None]
  - THROMBOCYTOPENIA [None]
  - VENTRICULAR FIBRILLATION [None]
  - WOUND HAEMORRHAGE [None]
